FAERS Safety Report 12271159 (Version 1)
Quarter: 2016Q2

REPORT INFORMATION
  Report Type: Spontaneous
  Country: US (occurrence: None)
  Receive Date: 20160414
  Receipt Date: 20160414
  Transmission Date: 20160815
  Serious: No
  Sender: FDA-Public Use
  Company Number: None

PATIENT
  Age: 19 Year
  Sex: Male

DRUGS (1)
  1. HUMIRA [Suspect]
     Active Substance: ADALIMUMAB
     Indication: CROHN^S DISEASE
     Dosage: 40MG WEEKLY UNDER SKIN(SQ)
     Route: 058
     Dates: start: 20150302, end: 20160222

REACTIONS (1)
  - Treatment failure [None]

NARRATIVE: CASE EVENT DATE: 20150412
